FAERS Safety Report 4978164-0 (Version None)
Quarter: 2006Q2

REPORT INFORMATION
  Report Type: 
  Country: None (occurrence: None)
  Receive Date: 20060417
  Receipt Date: 20060407
  Transmission Date: 20061013
  Serious: Yes (Hospitalization)
  Sender: FDA-Public Use
  Company Number: 223054

PATIENT
  Age: 43 Year
  Sex: Male
  Weight: 72.6 kg

DRUGS (10)
  1. AVASTIN [Suspect]
     Indication: PANCREATIC CARCINOMA
     Dosage: 10 MG/KG
     Dates: start: 20060109, end: 20060220
  2. GEMCITABINE [Suspect]
     Indication: PANCREATIC CARCINOMA
     Dosage: 1000 MG/M2
     Dates: start: 20060109, end: 20060227
  3. MS CONTIN [Concomitant]
  4. NORCO (ACETAMINOPHEN, HYDROCODONE BITARTRATE) [Concomitant]
  5. SENOKOT [Concomitant]
  6. PHENERGAN (PROMETHAZINE HYDROCHLORIDE) [Concomitant]
  7. PANCREASE MT (PANCRELIPASE) [Concomitant]
  8. ATIVAN [Concomitant]
  9. ZOFRAN [Concomitant]
  10. CIPRO [Concomitant]

REACTIONS (12)
  - ANOREXIA [None]
  - BLOOD BICARBONATE DECREASED [None]
  - BLOOD UREA DECREASED [None]
  - CHOLANGITIS [None]
  - DEHYDRATION [None]
  - DIARRHOEA [None]
  - FATIGUE [None]
  - HAEMATOCRIT DECREASED [None]
  - HAEMOGLOBIN DECREASED [None]
  - NAUSEA [None]
  - ORAL INTAKE REDUCED [None]
  - STENT OCCLUSION [None]
